FAERS Safety Report 25190976 (Version 2)
Quarter: 2025Q2

REPORT INFORMATION
  Report Type: Report from Study
  Country: DE (occurrence: DE)
  Receive Date: 20250411
  Receipt Date: 20250609
  Transmission Date: 20250717
  Serious: Yes (Death)
  Sender: REGENERON
  Company Number: DE-REGENERON PHARMACEUTICALS, INC.-2025-062806

PATIENT
  Age: 91 Year
  Sex: Male

DRUGS (1)
  1. CEMIPLIMAB [Suspect]
     Active Substance: CEMIPLIMAB
     Indication: Product used for unknown indication
     Dates: start: 20200611, end: 20200903

REACTIONS (2)
  - Pneumonitis [Fatal]
  - Death [Fatal]

NARRATIVE: CASE EVENT DATE: 20200917
